FAERS Safety Report 15359524 (Version 3)
Quarter: 2018Q4

REPORT INFORMATION
  Report Type: Spontaneous
  Country: US (occurrence: US)
  Receive Date: 20180907
  Receipt Date: 20181109
  Transmission Date: 20190204
  Serious: No
  Sender: FDA-Public Use
  Company Number: US-JNJFOC-20180825494

PATIENT
  Age: 67 Year
  Sex: Male
  Weight: 84.82 kg

DRUGS (21)
  1. FLEXERIL [Concomitant]
     Active Substance: CYCLOBENZAPRINE HYDROCHLORIDE
     Indication: MUSCLE SPASMS
     Dosage: AT NIGHTS
     Route: 048
  2. ZYRTEC [Concomitant]
     Active Substance: CETIRIZINE HYDROCHLORIDE
     Dosage: AS NEEDED (PRN)
     Route: 048
  3. BENADRYL [Concomitant]
     Active Substance: DIPHENHYDRAMINE HYDROCHLORIDE
     Route: 065
  4. ASPIRIN W/CAFFEINE [Concomitant]
     Active Substance: ASPIRIN\CAFFEINE
     Route: 048
  5. MAGNESIUM CITRATE. [Concomitant]
     Active Substance: MAGNESIUM CITRATE
     Route: 065
  6. PRILOSEC [Concomitant]
     Active Substance: OMEPRAZOLE MAGNESIUM
     Route: 048
  7. ALAWAY [Concomitant]
     Active Substance: KETOTIFEN FUMARATE
     Route: 047
  8. EPIPEN [Concomitant]
     Active Substance: EPINEPHRINE
     Route: 065
  9. PEPCID [Concomitant]
     Active Substance: FAMOTIDINE
     Route: 048
  10. LOPRESSOR [Concomitant]
     Active Substance: METOPROLOL TARTRATE
     Route: 048
  11. MYCOSTATIN [Concomitant]
     Active Substance: NYSTATIN
     Dosage: AS NEEDED
     Route: 065
  12. PREDNISONE. [Concomitant]
     Active Substance: PREDNISONE
     Route: 048
  13. LIVALO [Concomitant]
     Active Substance: PITAVASTATIN CALCIUM
     Dosage: EVERY AFTERNOON OR EVENING (QPM)
     Route: 048
  14. CALCIUM CARBONATE/VITAMIN D3 [Concomitant]
     Active Substance: CALCIUM CARBONATE\CHOLECALCIFEROL
     Route: 048
  15. GLUCOSAMINE SULFATE POTASSIUM CHLORIDE [Concomitant]
     Active Substance: GLUCOSAMINE SULFATE POTASSIUM CHLORIDE
     Route: 048
  16. DILAUDID [Concomitant]
     Active Substance: HYDROMORPHONE HYDROCHLORIDE
     Route: 048
  17. LIDODERM [Concomitant]
     Active Substance: LIDOCAINE
     Dosage: ONCE 12 HOURS ON ONCE 12 HOURS OFF DOSE 700 MG
     Route: 065
  18. UROCIT-K [Concomitant]
     Active Substance: POTASSIUM CITRATE
     Route: 048
  19. SIMPONI [Suspect]
     Active Substance: GOLIMUMAB
     Indication: PRODUCT USED FOR UNKNOWN INDICATION
     Route: 058
     Dates: start: 20180613, end: 20180730
  20. LINZESS [Concomitant]
     Active Substance: LINACLOTIDE
     Route: 048
  21. AZULFIDINE [Concomitant]
     Active Substance: SULFASALAZINE
     Dosage: 3 TABLETS
     Route: 048

REACTIONS (1)
  - Psoriasis [Recovered/Resolved]

NARRATIVE: CASE EVENT DATE: 20180627
